FAERS Safety Report 8435139-7 (Version None)
Quarter: 2012Q2

REPORT INFORMATION
  Report Type: 
  Country: None (occurrence: None)
  Receive Date: 20120614
  Receipt Date: 20120609
  Transmission Date: 20120825
  Serious: Yes (Hospitalization, Other)
  Sender: FDA-Public Use
  Company Number: PHHY2012NL049647

PATIENT
  Sex: Female

DRUGS (9)
  1. FENTANYL [Concomitant]
     Dosage: 12 U, / 3 DAYS
     Route: 062
  2. DICLOFENAC SODIUM [Concomitant]
     Dosage: 50 MG, TID
  3. ACETAMINOPHEN [Concomitant]
     Dosage: 500 MG, AS REQUIRED.
  4. ZOMETA [Suspect]
     Dosage: 4 MG, EVERY 28 DAYS
     Route: 042
     Dates: start: 20100909
  5. ZOMETA [Suspect]
     Dosage: 4 MG, EVERY 28 DAYS
     Route: 042
     Dates: start: 20120515
  6. LEVOTHYROXINE SODIUM [Concomitant]
     Dosage: 0.25 MG,1X5
  7. ZOMETA [Suspect]
     Indication: BREAST CANCER METASTATIC
     Dosage: 4 MG EVERY 28 DAYS
     Route: 042
  8. FUROSEMIDE [Concomitant]
  9. TAMOXIFEN CITRATE [Concomitant]
     Dosage: 20 MG,1X1,

REACTIONS (2)
  - GENERAL PHYSICAL HEALTH DETERIORATION [None]
  - GASTROENTERITIS VIRAL [None]
